FAERS Safety Report 4632146-7 (Version None)
Quarter: 2005Q2

REPORT INFORMATION
  Report Type: 
  Country: None (occurrence: None)
  Receive Date: 20050401
  Receipt Date: 20040427
  Transmission Date: 20051028
  Serious: Yes (Hospitalization)
  Sender: FDA-Public Use
  Company Number: 04P-163-0259302-00

PATIENT
  Age: 15 Year
  Sex: Female
  Weight: 16.8 kg

DRUGS (9)
  1. DEPAKOTE [Suspect]
     Indication: CONVULSION
     Dosage: 500 MG IN THE AM AND 625 MG IN THE PM; ORAL
     Route: 048
     Dates: start: 20030101
  2. AMLODIPINE BESYLATE [Concomitant]
  3. CALCITRIOL [Concomitant]
  4. EPOETIN ALFA [Concomitant]
  5. GENOCYCIN [Concomitant]
  6. POTASSIUM CITRATE [Concomitant]
  7. ACID SOLUTION [Concomitant]
  8. ZOPINEX [Concomitant]
  9. BACTRIM [Concomitant]

REACTIONS (3)
  - CONFUSIONAL STATE [None]
  - FUNGAL INFECTION [None]
  - MENTAL STATUS CHANGES [None]
